FAERS Safety Report 7712217-9 (Version None)
Quarter: 2011Q3

REPORT INFORMATION
  Report Type: 
  Country: None (occurrence: None)
  Receive Date: 20110826
  Receipt Date: 20110818
  Transmission Date: 20111222
  Serious: Yes (Life-Threatening, Other)
  Sender: FDA-Public Use
  Company Number: US-ACTELION-A-US2011-44120

PATIENT

DRUGS (4)
  1. REVATIO [Concomitant]
  2. COUMADIN [Concomitant]
  3. CALCIUM CHANNEL BLOCKERS [Concomitant]
  4. TRACLEER [Suspect]
     Indication: PULMONARY ARTERIAL HYPERTENSION
     Dosage: UNK
     Route: 048
     Dates: start: 20100723, end: 20110111

REACTIONS (4)
  - CHEMOTHERAPY [None]
  - COLON CANCER [None]
  - BREAST CANCER [None]
  - LIVER FUNCTION TEST ABNORMAL [None]
